FAERS Safety Report 8383491-3 (Version None)
Quarter: 2012Q2

REPORT INFORMATION
  Report Type: 
  Country: None (occurrence: None)
  Receive Date: 20120524
  Receipt Date: 20120515
  Transmission Date: 20120825
  Serious: Yes (Death)
  Sender: FDA-Public Use
  Company Number: FR-MILLENNIUM PHARMACEUTICALS, INC.-2012-03503

PATIENT

DRUGS (2)
  1. CYTARABINE [Suspect]
     Indication: MYELODYSPLASTIC SYNDROME
     Dosage: 10 MG/M2, CYCLIC
     Route: 058
  2. VELCADE [Suspect]
     Indication: MYELODYSPLASTIC SYNDROME
     Dosage: 1.5 MG/M2, CYCLIC
     Route: 040

REACTIONS (1)
  - LUNG NEOPLASM MALIGNANT [None]
